FAERS Safety Report 4562065-6 (Version None)
Quarter: 2005Q1

REPORT INFORMATION
  Report Type: 
  Country: None (occurrence: None)
  Receive Date: 20050127
  Receipt Date: 20050114
  Transmission Date: 20050727
  Serious: Yes (Hospitalization)
  Sender: FDA-Public Use
  Company Number: ES-JNJFOC-20050103716

PATIENT
  Age: 34 Year
  Sex: Female

DRUGS (3)
  1. REMICADE [Suspect]
     Route: 042
  2. IMUREL [Concomitant]
  3. CYCLOSPORINE [Concomitant]

REACTIONS (3)
  - ARTHRITIS BACTERIAL [None]
  - CANDIDIASIS [None]
  - OSTEOMYELITIS [None]
